FAERS Safety Report 4957108-1 (Version None)
Quarter: 2006Q1

REPORT INFORMATION
  Report Type: 
  Country: None (occurrence: None)
  Receive Date: 20060323
  Receipt Date: 20060314
  Transmission Date: 20060701
  Serious: Yes (Disabling, Other)
  Sender: FDA-Public Use
  Company Number: 2006036596

PATIENT
  Sex: Male
  Weight: 86.1834 kg

DRUGS (1)
  1. DILANTIN [Suspect]
     Indication: CONVULSION
     Dosage: 500 MG (1 D)

REACTIONS (5)
  - ANTISOCIAL BEHAVIOUR [None]
  - DRUG INEFFECTIVE [None]
  - ERECTILE DYSFUNCTION [None]
  - LOSS OF EMPLOYMENT [None]
  - NERVOUSNESS [None]
